FAERS Safety Report 25801243 (Version 1)
Quarter: 2025Q3

REPORT INFORMATION
  Report Type: Spontaneous
  Country: US (occurrence: US)
  Receive Date: 20250915
  Receipt Date: 20250915
  Transmission Date: 20251021
  Serious: No
  Sender: ABBVIE
  Company Number: US-ABBVIE-6450857

PATIENT
  Age: 81 Year
  Sex: Female

DRUGS (1)
  1. PRED FORTE [Suspect]
     Active Substance: PREDNISOLONE ACETATE
     Indication: Eye inflammation
     Route: 047
     Dates: start: 2024

REACTIONS (1)
  - Off label use [Unknown]
